FAERS Safety Report 8764427 (Version 2)
Quarter: 2012Q4

REPORT INFORMATION
  Report Type: 
  Country: BR (occurrence: BR)
  Receive Date: 20120831
  Receipt Date: 20120917
  Transmission Date: 20130627
  Serious: No
  Sender: FDA-Public Use
  Company Number: BR-ELI_LILLY_AND_COMPANY-BR201208008696

PATIENT
  Sex: Male
  Weight: 80 kg

DRUGS (4)
  1. HUMALOG LISPRO [Suspect]
     Indication: TYPE 2 DIABETES MELLITUS
     Dosage: UNK, tid
     Route: 058
     Dates: start: 2007
  2. LEVEMIR [Concomitant]
     Dosage: UNK, bid
     Route: 065
  3. ENALAPRIL MALEATE [Concomitant]
     Indication: PROPHYLAXIS
     Dosage: 10 mg, qd
     Route: 065
  4. GABAPENTINA [Concomitant]
     Indication: DIABETIC NEUROPATHY
     Dosage: 400 mg, tid
     Route: 065

REACTIONS (4)
  - Feeling abnormal [Recovered/Resolved]
  - Incorrect route of drug administration [Unknown]
  - Hypoglycaemia [Recovered/Resolved]
  - Injection site haemorrhage [Unknown]
